FAERS Safety Report 4579701-0 (Version None)
Quarter: 2005Q1

REPORT INFORMATION
  Report Type: 
  Country: None (occurrence: None)
  Receive Date: 20050210
  Receipt Date: 20050126
  Transmission Date: 20050727
  Serious: Yes (Death)
  Sender: FDA-Public Use
  Company Number: 2004AL000784

PATIENT
  Age: 48 Year
  Sex: Female

DRUGS (2)
  1. VERAPAMIL HYDROCHLORIDE [Suspect]
     Dosage: PO
     Route: 048
  2. CANDESARTAN [Suspect]
     Dosage: PO
     Route: 048

REACTIONS (2)
  - COMA [None]
  - COMPLETED SUICIDE [None]
